FAERS Safety Report 6857502-8 (Version None)
Quarter: 2010Q3

REPORT INFORMATION
  Report Type: 
  Country: None (occurrence: None)
  Receive Date: 20100719
  Receipt Date: 20100712
  Transmission Date: 20110219
  Serious: Yes (Death)
  Sender: FDA-Public Use
  Company Number: JP-ABBOTT-09P-087-0570093-00

PATIENT
  Age: 83 Year
  Sex: Male
  Weight: 59 kg

DRUGS (6)
  1. LEUPLIN SR FOR INJECTION 11.25 MG [Suspect]
     Indication: PROSTATE CANCER STAGE IV
     Route: 058
     Dates: start: 20060309, end: 20060921
  2. LEUPROLIDE ACETATE [Suspect]
     Indication: PROSTATE CANCER STAGE IV
     Dates: start: 20060209, end: 20060209
  3. CASODEX [Concomitant]
     Indication: PROSTATE CANCER STAGE IV
     Route: 048
     Dates: start: 20060128, end: 20060921
  4. FLUTAMIDE [Concomitant]
     Indication: PROSTATE CANCER STAGE IV
     Route: 048
     Dates: start: 20060921, end: 20061119
  5. MAGNESIUM OXIDE [Concomitant]
     Indication: CONSTIPATION
     Route: 048
     Dates: start: 20060209
  6. LOXONIN [Concomitant]
     Indication: CANCER PAIN
     Route: 048
     Dates: start: 20060209

REACTIONS (1)
  - PROSTATE CANCER [None]
